FAERS Safety Report 4819449-8 (Version None)
Quarter: 2005Q4

REPORT INFORMATION
  Report Type: 
  Country: None (occurrence: None)
  Receive Date: 20051103
  Receipt Date: 20051025
  Transmission Date: 20060501
  Serious: Yes (Other)
  Sender: FDA-Public Use
  Company Number: JP-JNJFOC-20050306078

PATIENT
  Sex: Female

DRUGS (9)
  1. ITRIZOLE [Suspect]
     Route: 048
     Dates: start: 20050203, end: 20050303
  2. MEROPENEM [Concomitant]
     Indication: PNEUMONIA
     Route: 042
     Dates: start: 20050120, end: 20050204
  3. LEVOFLOXACIN [Concomitant]
     Indication: PNEUMONIA
     Route: 048
     Dates: start: 20050204, end: 20050205
  4. PRECIPITATED CALCIUM CARBONATE [Concomitant]
     Route: 048
  5. OXATOMIDE [Concomitant]
     Route: 048
  6. CAFFEINE [Concomitant]
     Route: 048
  7. EPOETIN BETA [Concomitant]
     Route: 042
  8. EPOETIN BETA [Concomitant]
     Route: 042
  9. EPOETIN BETA [Concomitant]
     Indication: NEPHROGENIC ANAEMIA
     Route: 042

REACTIONS (1)
  - PANCYTOPENIA [None]
